FAERS Safety Report 23250223 (Version 1)
Quarter: 2023Q4

REPORT INFORMATION
  Report Type: Report from Study
  Country: US (occurrence: US)
  Receive Date: 20231201
  Receipt Date: 20231201
  Transmission Date: 20240109
  Serious: Yes (Hospitalization)
  Sender: FDA-Public Use
  Company Number: US-PUMA BIOTECHNOLOGY, LTD.-2023-PUM-US001685

PATIENT

DRUGS (3)
  1. NERLYNX [Suspect]
     Active Substance: NERATINIB
     Indication: Breast cancer
     Dosage: 3 TABLETS ( 120MG),DAILY
     Route: 048
     Dates: start: 20231002, end: 20231008
  2. NERLYNX [Suspect]
     Active Substance: NERATINIB
     Dosage: 4 TABLETS (160MG),DAILY
     Route: 048
     Dates: start: 20231009, end: 2023
  3. NERLYNX [Suspect]
     Active Substance: NERATINIB
     Dosage: 6 TABLETS (240MG),DAILY
     Route: 048
     Dates: start: 2023, end: 2023

REACTIONS (3)
  - Blood potassium decreased [Recovered/Resolved]
  - Diarrhoea [Recovered/Resolved]
  - Drug titration [Unknown]

NARRATIVE: CASE EVENT DATE: 20230101
